FAERS Safety Report 4357377-5 (Version None)
Quarter: 2004Q2

REPORT INFORMATION
  Report Type: 
  Country: None (occurrence: None)
  Receive Date: 20040510
  Receipt Date: 20040422
  Transmission Date: 20050107
  Serious: Yes (Hospitalization)
  Sender: FDA-Public Use
  Company Number: DSA_24280_2004

PATIENT
  Age: 36 Year
  Sex: Male

DRUGS (20)
  1. LORAZEPAM [Suspect]
     Dosage: 0.5 MG QD PO
     Route: 048
     Dates: start: 20030228, end: 20030302
  2. LORAZEPAM [Suspect]
     Dosage: 1 MG QD PO
     Route: 048
     Dates: start: 20030204, end: 20030227
  3. LORAZEPAM [Suspect]
     Dosage: 2 MG QD PO
     Route: 048
     Dates: start: 20021211, end: 20030203
  4. LORAZEPAM [Suspect]
     Dosage: 2.5 MG QD PO
     Route: 048
     Dates: start: 20021021, end: 20021210
  5. LORAZEPAM [Suspect]
     Dosage: 4 MG Q DAY PO
     Route: 048
     Dates: start: 20020920, end: 20021020
  6. BRONCHORETARD [Suspect]
     Dosage: 350 MG QD PO
     Route: 048
     Dates: start: 20030303
  7. CIPRAMIL [Suspect]
     Dosage: 20 MG QD PO
     Route: 048
     Dates: start: 20030125, end: 20030304
  8. CLOZAPINE [Suspect]
     Dosage: 25 MG QD PO
     Route: 048
     Dates: start: 20030304, end: 20030304
  9. CLOZAPINE [Suspect]
     Dosage: 12.5 MG QD PO
     Route: 048
     Dates: start: 20030303, end: 20030303
  10. RISPERDAL [Suspect]
     Dosage: 6 MG QD PO
     Route: 048
     Dates: start: 20030122
  11. RISPERDAL [Suspect]
     Dosage: 5 MG QD PO
     Route: 048
     Dates: start: 20030110, end: 20030121
  12. RISPERDAL [Suspect]
     Dosage: 4 MG QD PO
     Route: 048
     Dates: start: 20020924, end: 20030109
  13. RISPERDAL [Suspect]
     Dosage: 3 MG QD PO
     Route: 048
     Dates: start: 20020920, end: 20030923
  14. ZYPREXA [Suspect]
     Dosage: 10 MG Q DAY PO
     Route: 048
     Dates: start: 20021213, end: 20030305
  15. ZYPREXA [Suspect]
     Dosage: 20 MG QD PO
     Route: 048
     Dates: start: 20030306
  16. ZYPREXA [Suspect]
     Dosage: 15 MG QD PO
     Route: 048
     Dates: start: 20021107, end: 20021212
  17. ZYPREXA [Suspect]
     Dosage: 10 MG Q DAY PO
     Route: 048
     Dates: start: 20021018, end: 20021106
  18. ASPIRIN [Concomitant]
  19. PULMICORT [Concomitant]
  20. BEROTEC [Concomitant]

REACTIONS (4)
  - DRUG INTERACTION [None]
  - FACIAL BONES FRACTURE [None]
  - FALL [None]
  - GRAND MAL CONVULSION [None]
